FAERS Safety Report 17696837 (Version 4)
Quarter: 2020Q2

REPORT INFORMATION
  Report Type: Spontaneous
  Country: US (occurrence: US)
  Receive Date: 20200423
  Receipt Date: 20200521
  Transmission Date: 20200714
  Serious: Yes (Hospitalization)
  Sender: FDA-Public Use
  Company Number: US-AUROBINDO-AUR-APL-2020-019377

PATIENT
  Age: 73 Year
  Sex: Female
  Weight: 65.76 kg

DRUGS (1)
  1. ALENDRONATE SODIUM TABLETS USP 70MG [Suspect]
     Active Substance: ALENDRONATE SODIUM
     Indication: OSTEOPOROSIS
     Dosage: 1 DOSAGE FORM, DAILY
     Route: 065
     Dates: start: 20200322, end: 20200323

REACTIONS (5)
  - Tremor [Recovered/Resolved]
  - Abdominal rigidity [Recovered/Resolved]
  - Bone pain [Recovered/Resolved]
  - Drug hypersensitivity [Recovered/Resolved]
  - Asthenia [Recovered/Resolved]

NARRATIVE: CASE EVENT DATE: 20200322
